FAERS Safety Report 6626040-X (Version None)
Quarter: 2010Q1

REPORT INFORMATION
  Report Type: 
  Country: None (occurrence: None)
  Receive Date: 20100310
  Receipt Date: 20100303
  Transmission Date: 20100710
  Serious: Yes (Congenital Anomaly)
  Sender: FDA-Public Use
  Company Number: A0684469A

PATIENT
  Sex: Male

DRUGS (2)
  1. PAXIL [Suspect]
     Indication: ANXIETY
     Dosage: 20MG PER DAY
     Dates: start: 19990201, end: 20000301
  2. VITAMIN AND MINERAL PRENATAL SUPPLEMENT W/ FOLIC ACID CAP [Concomitant]

REACTIONS (6)
  - ATRIAL SEPTAL DEFECT [None]
  - CONGENITAL CORONARY ARTERY MALFORMATION [None]
  - DRUG EXPOSURE DURING PREGNANCY [None]
  - RESPIRATORY FAILURE [None]
  - TRICUSPID VALVE INCOMPETENCE [None]
  - VENTRICULAR SEPTAL DEFECT [None]
